FAERS Safety Report 10061697 (Version 1)
Quarter: 2014Q2

REPORT INFORMATION
  Report Type: Spontaneous
  Country: US (occurrence: US)
  Receive Date: 20140407
  Receipt Date: 20140407
  Transmission Date: 20141212
  Serious: No
  Sender: FDA-Public Use
  Company Number: US-TARO-2013P1021079

PATIENT
  Age: 71 Year
  Sex: Male
  Weight: 122.47 kg

DRUGS (15)
  1. FLUOROURACIL TOPICAL CREAM USP 5% [Suspect]
     Route: 061
     Dates: start: 20131031
  2. LABETALOL [Concomitant]
  3. TYLENOL [Concomitant]
  4. HYDROCHLOROTHIAZIDE [Concomitant]
  5. FINASTERIDE [Concomitant]
  6. VITAMIN D [Concomitant]
  7. FELODIPINE [Concomitant]
  8. FLOMAX [Concomitant]
  9. DIOVAN [Concomitant]
  10. CELEBREX [Concomitant]
  11. SIMVASTATIN [Concomitant]
  12. WARFARIN [Concomitant]
  13. SPIRONOLACTONE [Concomitant]
  14. MULTIVITAMIN [Concomitant]
  15. GLUCOSAMINE [Concomitant]

REACTIONS (3)
  - Application site erythema [Unknown]
  - Application site pain [Unknown]
  - Sensory disturbance [Unknown]
